FAERS Safety Report 19021616 (Version 2)
Quarter: 2023Q4

REPORT INFORMATION
  Report Type: Spontaneous
  Country: IT (occurrence: IT)
  Receive Date: 20210317
  Receipt Date: 20231129
  Transmission Date: 20240110
  Serious: Yes (Death, Other)
  Sender: FDA-Public Use
  Company Number: IT-JNJFOC-20210324637

PATIENT

DRUGS (3)
  1. IMBRUVICA [Suspect]
     Active Substance: IBRUTINIB
     Indication: Chronic lymphocytic leukaemia
     Route: 048
  2. OBINUTUZUMAB [Suspect]
     Active Substance: OBINUTUZUMAB
     Indication: Chronic lymphocytic leukaemia
     Route: 065
  3. CHLORAMBUCIL [Suspect]
     Active Substance: CHLORAMBUCIL
     Indication: Chronic lymphocytic leukaemia
     Route: 065

REACTIONS (9)
  - Lung neoplasm malignant [Fatal]
  - Atrial fibrillation [Unknown]
  - Infection [Unknown]
  - Cardiovascular disorder [Fatal]
  - Thrombocytopenia [Unknown]
  - Sepsis [Fatal]
  - Neutropenia [Unknown]
  - Pneumonia [Fatal]
  - Anaemia [Unknown]
